FAERS Safety Report 23485167 (Version 1)
Quarter: 2024Q1

REPORT INFORMATION
  Report Type: Spontaneous
  Country: US (occurrence: US)
  Receive Date: 20240206
  Receipt Date: 20240206
  Transmission Date: 20240410
  Serious: No
  Sender: FDA-Public Use
  Company Number: US-SA-SAC20240130000071

PATIENT
  Sex: Female
  Weight: 77.11 kg

DRUGS (1)
  1. DUPIXENT [Suspect]
     Active Substance: DUPILUMAB
     Indication: Asthma
     Dosage: 300 MG, QOW
     Route: 058
     Dates: start: 20231127

REACTIONS (8)
  - Peripheral swelling [Unknown]
  - Joint swelling [Unknown]
  - Pyrexia [Unknown]
  - Fatigue [Unknown]
  - Vertigo [Unknown]
  - Myalgia [Unknown]
  - Arthralgia [Unknown]
  - Therapeutic response decreased [Unknown]
